FAERS Safety Report 7178518-0 (Version None)
Quarter: 2010Q4

REPORT INFORMATION
  Report Type: 
  Country: None (occurrence: None)
  Receive Date: 20101220
  Receipt Date: 20101209
  Transmission Date: 20110411
  Serious: Yes (Other)
  Sender: FDA-Public Use
  Company Number: JP-AMGEN-JPNCT2010009643

PATIENT

DRUGS (17)
  1. PANITUMUMAB [Suspect]
     Indication: COLORECTAL CANCER
     Dosage: 5.3 MG/KG, Q2WK
     Route: 041
     Dates: start: 20100729, end: 20100729
  2. IRINOTECAN HYDROCHLORIDE [Suspect]
     Indication: COLORECTAL CANCER
     Route: 041
     Dates: start: 20100729
  3. FLUOROURACIL [Suspect]
     Indication: COLORECTAL CANCER
     Route: 041
     Dates: start: 20100729
  4. CALCIUM LEVOFOLINATE [Suspect]
     Indication: COLORECTAL CANCER
     Route: 041
     Dates: start: 20100729
  5. CETUXIMAB [Suspect]
     Indication: COLORECTAL CANCER
     Route: 041
     Dates: start: 20100401, end: 20100701
  6. ANTIHISTAMINES [Concomitant]
     Indication: PROPHYLAXIS
     Route: 065
  7. CORTICOSTEROIDS [Concomitant]
     Indication: PROPHYLAXIS
     Route: 065
  8. KYTRIL [Concomitant]
     Route: 042
  9. DECADRON [Concomitant]
     Route: 042
  10. OXYCONTIN [Concomitant]
     Route: 048
  11. LORFENAMIN [Concomitant]
     Route: 048
  12. VOLTAREN [Concomitant]
     Route: 048
  13. PYDOXAL [Concomitant]
     Route: 048
  14. OXINORM [Concomitant]
     Route: 048
  15. PARIET [Concomitant]
     Route: 048
  16. ZOPICOOL [Concomitant]
     Route: 048
  17. MYSLEE [Concomitant]
     Route: 048

REACTIONS (5)
  - ABDOMINAL ABSCESS [None]
  - ANAEMIA [None]
  - DEHYDRATION [None]
  - DERMATITIS ACNEIFORM [None]
  - HEPATIC FUNCTION ABNORMAL [None]
